FAERS Safety Report 19707678 (Version 4)
Quarter: 2022Q2

REPORT INFORMATION
  Report Type: Spontaneous
  Country: GB (occurrence: GB)
  Receive Date: 20210816
  Receipt Date: 20220517
  Transmission Date: 20220721
  Serious: Yes (Other)
  Sender: FDA-Public Use
  Company Number: NVSC2020GB100876

PATIENT
  Age: 52 Year
  Sex: Female

DRUGS (60)
  1. LETROZOLE [Suspect]
     Active Substance: LETROZOLE
     Indication: Product used for unknown indication
     Dosage: 2.5 MG, QD
     Route: 048
     Dates: start: 20160407, end: 20181129
  2. PACLITAXEL [Suspect]
     Active Substance: PACLITAXEL
     Indication: Product used for unknown indication
     Dosage: 111 MG, TIW
     Route: 042
     Dates: start: 20160311, end: 20160324
  3. DOCETAXEL [Suspect]
     Active Substance: DOCETAXEL
     Indication: Product used for unknown indication
     Dosage: 180 MG, TIW
     Route: 042
     Dates: start: 20151231, end: 20160212
  4. DOCETAXEL [Suspect]
     Active Substance: DOCETAXEL
     Dosage: 180 MG, TIW
     Route: 042
     Dates: start: 20160212
  5. DOCETAXEL [Suspect]
     Active Substance: DOCETAXEL
     Dosage: 180 MG
     Route: 042
     Dates: start: 20210212
  6. TRASTUZUMAB [Suspect]
     Active Substance: TRASTUZUMAB
     Indication: Breast cancer metastatic
     Dosage: 600 MG, TIW
     Route: 058
     Dates: start: 20151231, end: 20190308
  7. TRASTUZUMAB [Suspect]
     Active Substance: TRASTUZUMAB
     Dosage: 300 MG, TIW
     Route: 042
     Dates: start: 20190405
  8. TRASTUZUMAB [Suspect]
     Active Substance: TRASTUZUMAB
     Dosage: 600 MG, TIW
     Route: 058
     Dates: start: 20200619
  9. ABRAXANE [Suspect]
     Active Substance: PACLITAXEL
     Indication: Product used for unknown indication
     Dosage: 111 MG, TIW
     Route: 040
     Dates: start: 20160311, end: 20160324
  10. FEXOFENADINE [Concomitant]
     Active Substance: FEXOFENADINE HYDROCHLORIDE
     Indication: Product used for unknown indication
     Dosage: 180 MG, QD
     Route: 048
     Dates: start: 20170504, end: 20170519
  11. FEXOFENADINE [Concomitant]
     Active Substance: FEXOFENADINE HYDROCHLORIDE
     Dosage: 180 MG, PRN (AS NEEDED)
     Route: 048
     Dates: start: 20180222, end: 20180422
  12. FEXOFENADINE [Concomitant]
     Active Substance: FEXOFENADINE HYDROCHLORIDE
     Dosage: 180 MG, PRN (AS NEEDED)
     Route: 048
     Dates: start: 20190516
  13. HYALOFEMME [Concomitant]
     Indication: Product used for unknown indication
     Dosage: UNK, PRN (AS NEEDED)
     Route: 061
     Dates: start: 20180226
  14. OMEPRAZOLE [Concomitant]
     Active Substance: OMEPRAZOLE
     Indication: Product used for unknown indication
     Dosage: 20 MG, UNKNOWN
     Route: 048
     Dates: start: 20160212
  15. CARBOMERS [Concomitant]
     Indication: Product used for unknown indication
     Dosage: [DRP] (DROP (1/12 MILLILITRE)), PRN
     Route: 047
     Dates: start: 20160706
  16. CARBOMERS [Concomitant]
     Dosage: UNK, (1*GTT, PRN (AS NEEDED))
     Route: 065
     Dates: start: 20160706
  17. XAILIN [Concomitant]
     Indication: Product used for unknown indication
     Dosage: UNK UNK, PRN (AS NEEDED)
     Route: 047
     Dates: start: 20160831
  18. CETIRIZINE [Concomitant]
     Active Substance: CETIRIZINE HYDROCHLORIDE
     Indication: Product used for unknown indication
     Dosage: 10 MG, QD (DAILY AS NEEDED)
     Route: 048
     Dates: start: 20170911
  19. HYPROMELLOSES [Concomitant]
     Active Substance: HYPROMELLOSES
     Indication: Product used for unknown indication
     Dosage: UNK
     Route: 065
     Dates: start: 20160831
  20. SYSTANE BALANCE [Concomitant]
     Active Substance: PROPYLENE GLYCOL
     Indication: Product used for unknown indication
     Dosage: 1 GTT, PRN (DRP] (DROP (1/12 MILLILITRE)
     Route: 047
  21. CLOBETASONE [Concomitant]
     Active Substance: CLOBETASONE
     Indication: Product used for unknown indication
     Dosage: UNK
     Route: 061
  22. SYMBICORT [Concomitant]
     Active Substance: BUDESONIDE\FORMOTEROL FUMARATE DIHYDRATE
     Indication: Product used for unknown indication
     Dosage: 1 DF, PRN (AS NEEDED)
     Route: 065
     Dates: start: 20151115
  23. SYMBICORT [Concomitant]
     Active Substance: BUDESONIDE\FORMOTEROL FUMARATE DIHYDRATE
     Dosage: UNK
     Route: 055
     Dates: start: 20190720
  24. LOPERAMIDE [Concomitant]
     Active Substance: LOPERAMIDE
     Indication: Diarrhoea
     Dosage: 1 DF, QD  (1 CAPSULE AS NEEDED.)
     Route: 048
     Dates: start: 20150415
  25. LOPERAMIDE [Concomitant]
     Active Substance: LOPERAMIDE
     Indication: Diarrhoea
     Dosage: 2 MG
     Route: 048
     Dates: start: 20200619
  26. ESTRIOL [Concomitant]
     Active Substance: ESTRIOL
     Indication: Product used for unknown indication
     Dosage: 0.1 %, PRN (2-3 WEEKS)
     Route: 067
     Dates: start: 20150415
  27. ALBUTEROL [Concomitant]
     Active Substance: ALBUTEROL
     Indication: Product used for unknown indication
     Dosage: 2 DF, PRN (2 PUFF AS NEEDED)
     Route: 065
     Dates: start: 20000413
  28. ALBUTEROL [Concomitant]
     Active Substance: ALBUTEROL
     Dosage: 2 DF, PRN (2 PUFF AS NEEDED)
     Route: 065
     Dates: start: 20000418
  29. MOMETASONE [Concomitant]
     Active Substance: MOMETASONE
     Indication: Product used for unknown indication
     Dosage: 2 DF, QD (2 PUFF)
     Route: 065
     Dates: start: 20120925
  30. CHLORPHENIRAMINE MALEATE [Concomitant]
     Active Substance: CHLORPHENIRAMINE MALEATE
     Indication: Product used for unknown indication
     Dosage: UNK
     Route: 048
     Dates: start: 20170503, end: 20170503
  31. CHLORPHENIRAMINE MALEATE [Concomitant]
     Active Substance: CHLORPHENIRAMINE MALEATE
     Dosage: 4 MG, QD
     Route: 048
     Dates: start: 201904, end: 201904
  32. CHLORPHENIRAMINE MALEATE [Concomitant]
     Active Substance: CHLORPHENIRAMINE MALEATE
     Dosage: 4 MG
     Route: 048
     Dates: start: 201904, end: 20190502
  33. CHLORPHENIRAMINE MALEATE [Concomitant]
     Active Substance: CHLORPHENIRAMINE MALEATE
     Dosage: 4 MG, QD (4-6 HOURLY)
     Route: 048
     Dates: start: 20190502, end: 20190515
  34. CARBOMER [Concomitant]
     Active Substance: CARBOMER
     Indication: Product used for unknown indication
     Dosage: 1 GTT, PRN (AS NEEDED)
     Route: 047
     Dates: start: 20160706
  35. EVENING PRIMROSE OIL\HERBALS [Concomitant]
     Active Substance: EVENING PRIMROSE OIL\HERBALS
     Indication: Product used for unknown indication
     Dosage: UNK UNK, QD
     Route: 048
     Dates: start: 2017
  36. EURAX [Concomitant]
     Active Substance: CROTAMITON
     Indication: Product used for unknown indication
     Dosage: UNK, PRN (AS NEEDED)
     Route: 061
     Dates: start: 20190516, end: 201906
  37. EURAX [Concomitant]
     Active Substance: CROTAMITON
     Dosage: UNK (AS NEEDED)
     Route: 061
     Dates: start: 20200109
  38. EUCALYPTUS OIL [Concomitant]
     Active Substance: EUCALYPTUS OIL
     Indication: Product used for unknown indication
     Dosage: UNK, QD
     Route: 061
     Dates: start: 20191219, end: 20191219
  39. SWEET ALMOND OIL [Concomitant]
     Active Substance: ALMOND OIL
     Indication: Product used for unknown indication
     Dosage: UNK, QD
     Route: 061
     Dates: start: 20191219, end: 20191219
  40. SWEET ALMOND OIL [Concomitant]
     Active Substance: ALMOND OIL
     Dosage: UNK, QD
     Route: 061
     Dates: start: 20200117, end: 20200117
  41. ACYCLOVIR [Concomitant]
     Active Substance: ACYCLOVIR
     Indication: Product used for unknown indication
     Dosage: 15 MG (DAILY DOSE : 1 OTHERTOTAL DOSE : 21 OTHERUNIT DOSE : .5)
     Route: 048
     Dates: start: 20190606, end: 20190627
  42. PEPPERMINT OIL [Concomitant]
     Active Substance: PEPPERMINT OIL
     Indication: Product used for unknown indication
     Dosage: UNK, QD
     Route: 061
     Dates: start: 20191219, end: 20191219
  43. EUMOVATE [Concomitant]
     Active Substance: CLOBETASONE BUTYRATE
     Indication: Product used for unknown indication
     Dosage: 1 DF, QMO (AS NEEDED)
     Route: 061
     Dates: start: 201904, end: 20190502
  44. TEA TREE OIL [Concomitant]
     Active Substance: TEA TREE OIL
     Indication: Product used for unknown indication
     Dosage: AS NEEDED
     Route: 047
     Dates: start: 20191029, end: 20191031
  45. COCODAMOL [Concomitant]
     Active Substance: ACETAMINOPHEN\CODEINE PHOSPHATE
     Indication: Product used for unknown indication
     Dosage: UNK, PRN (AS NEEDED)
     Route: 048
     Dates: start: 20190719
  46. COCODAMOL [Concomitant]
     Active Substance: ACETAMINOPHEN\CODEINE PHOSPHATE
     Dosage: UNK UNK, PRN (AS NEEDED)
     Route: 048
     Dates: start: 20160212
  47. ACETAMINOPHEN [Concomitant]
     Active Substance: ACETAMINOPHEN
     Indication: Product used for unknown indication
     Dosage: 1 G, PRN (AS NEEDED)
     Route: 048
     Dates: start: 2017
  48. MINERAL OIL [Concomitant]
     Active Substance: MINERAL OIL
     Indication: Product used for unknown indication
     Dosage: UNK UNK, PRN
     Route: 061
     Dates: start: 20180403
  49. DEXAMETHASONE SODIUM PHOSPHATE [Concomitant]
     Active Substance: DEXAMETHASONE SODIUM PHOSPHATE
     Indication: Product used for unknown indication
     Dosage: 1 UNK, UNKNOWN ((DROP (1/12 MILLILITRE)))
     Route: 047
     Dates: start: 20191119, end: 20191126
  50. DEXAMETHASONE SODIUM PHOSPHATE [Concomitant]
     Active Substance: DEXAMETHASONE SODIUM PHOSPHATE
     Dosage: 1 DRP, QD
     Route: 047
     Dates: start: 20191127
  51. SODIUM HYALURONATE [Concomitant]
     Active Substance: HYALURONATE SODIUM
     Indication: Product used for unknown indication
     Dosage: UNK UNK, PRN
     Route: 047
     Dates: start: 20191029
  52. BENZYDAMINE [Concomitant]
     Active Substance: BENZYDAMINE
     Indication: Product used for unknown indication
     Dosage: 15 MG
     Route: 065
     Dates: start: 20200710
  53. CHLORHEXIDINE [Concomitant]
     Active Substance: CHLORHEXIDINE
     Indication: Product used for unknown indication
     Dosage: 10 MG
     Route: 065
     Dates: start: 20200710
  54. HYDROCORTISONE [Concomitant]
     Active Substance: HYDROCORTISONE
     Indication: Product used for unknown indication
     Dosage: 2.5 MG
     Route: 002
     Dates: start: 20200610
  55. LAVENDER OIL [Concomitant]
     Active Substance: LAVENDER OIL
     Indication: Product used for unknown indication
     Dosage: UNK
     Route: 061
     Dates: start: 20200117, end: 20200117
  56. METOCLOPRAMIDE [Concomitant]
     Active Substance: METOCLOPRAMIDE
     Indication: Product used for unknown indication
     Dosage: 10 MG
     Route: 048
     Dates: start: 20200619
  57. NITROFURANTOIN [Concomitant]
     Active Substance: NITROFURANTOIN
     Indication: Product used for unknown indication
     Dosage: 100 MG
     Route: 048
     Dates: start: 20200407, end: 20200410
  58. HYALURONIC ACID [Concomitant]
     Active Substance: HYALURONIC ACID
     Indication: Product used for unknown indication
     Dosage: AS NEEDED
     Route: 061
     Dates: start: 20180226
  59. HYALURONATE SODIUM [Concomitant]
     Active Substance: HYALURONATE SODIUM
     Indication: Product used for unknown indication
     Dosage: UNK
     Route: 047
     Dates: start: 20191029
  60. ASCORBIC ACID [Concomitant]
     Active Substance: ASCORBIC ACID
     Indication: Product used for unknown indication
     Dosage: UNK
     Route: 065

REACTIONS (10)
  - Mass [Recovered/Resolved]
  - Skin ulcer [Recovered/Resolved]
  - Pain [Recovered/Resolved]
  - Neuropathy peripheral [Recovered/Resolved]
  - Nail disorder [Unknown]
  - Abdominal pain [Recovered/Resolved]
  - Fatigue [Recovered/Resolved]
  - Extravasation [Recovered/Resolved]
  - Alopecia [Recovered/Resolved]
  - Nausea [Recovered/Resolved]

NARRATIVE: CASE EVENT DATE: 20160211
